FAERS Safety Report 9007570 (Version 1)
Quarter: 2013Q1

REPORT INFORMATION
  Report Type: Spontaneous
  Country: US (occurrence: US)
  Receive Date: 20130111
  Receipt Date: 20130111
  Transmission Date: 20140127
  Serious: Yes (Other)
  Sender: FDA-Public Use
  Company Number: US-009507513-0909USA03368

PATIENT
  Age: 57 Year
  Sex: Female
  Weight: 61.24 kg

DRUGS (2)
  1. SINGULAIR [Suspect]
     Indication: HYPERSENSITIVITY
     Dosage: 10 MG, HS
     Route: 048
  2. SINGULAIR [Suspect]
     Indication: ASTHMA

REACTIONS (6)
  - Abasia [Unknown]
  - Malaise [Unknown]
  - Muscular weakness [Unknown]
  - Myalgia [Unknown]
  - Oropharyngeal pain [Unknown]
  - Stomatitis [Unknown]
